FAERS Safety Report 25482401 (Version 2)
Quarter: 2025Q3

REPORT INFORMATION
  Report Type: Spontaneous
  Country: US (occurrence: US)
  Receive Date: 20250626
  Receipt Date: 20250711
  Transmission Date: 20251020
  Serious: Yes (Hospitalization)
  Sender: TEVA
  Company Number: US-TEVA-VS-3342808

PATIENT
  Age: 20 Year
  Sex: Female

DRUGS (2)
  1. HYDROXYCHLOROQUINE [Suspect]
     Active Substance: HYDROXYCHLOROQUINE
     Indication: Pulmonary haemosiderosis
     Route: 065
  2. AZATHIOPRINE [Suspect]
     Active Substance: AZATHIOPRINE
     Indication: Pulmonary haemosiderosis
     Route: 065

REACTIONS (4)
  - Cholestatic liver injury [Recovering/Resolving]
  - Maternal exposure during pregnancy [Unknown]
  - Cholestasis of pregnancy [Recovering/Resolving]
  - Live birth [Unknown]
